FAERS Safety Report 4648621-5 (Version None)
Quarter: 2005Q2

REPORT INFORMATION
  Report Type: 
  Country: None (occurrence: None)
  Receive Date: 20050427
  Receipt Date: 20050418
  Transmission Date: 20051028
  Serious: Yes (Hospitalization)
  Sender: FDA-Public Use
  Company Number: 2005061590

PATIENT
  Age: 75 Year
  Sex: Female

DRUGS (4)
  1. TAHOR (ATORVASTATIN) [Suspect]
     Indication: ILL-DEFINED DISORDER
     Dosage: 10 MG (1 D), ORAL
     Route: 048
     Dates: start: 20041015, end: 20041031
  2. DOSTINEX [Suspect]
     Indication: ILL-DEFINED DISORDER
     Dosage: 0.5 MG (1 D), ORAL
     Route: 048
     Dates: start: 20041026, end: 20041031
  3. VALPROMIDE (VALPROMIDE) [Suspect]
     Indication: ILL-DEFINED DISORDER
     Dosage: 900 MG (1 D), ORAL
     Route: 048
     Dates: start: 20040929, end: 20041031
  4. CLONAZEPAM [Suspect]
     Indication: ILL-DEFINED DISORDER
     Dosage: ORAL
     Route: 048
     Dates: start: 20041009, end: 20041031

REACTIONS (6)
  - BLOOD BILIRUBIN INCREASED [None]
  - BLOOD LACTATE DEHYDROGENASE INCREASED [None]
  - COOMBS TEST POSITIVE [None]
  - HAEMOLYTIC ANAEMIA [None]
  - JAUNDICE [None]
  - PITUITARY TUMOUR BENIGN [None]
